FAERS Safety Report 7016454 (Version 5)
Quarter: 2013Q1

REPORT INFORMATION
  Report Type: Spontaneous
  Country: US (occurrence: US)
  Receive Date: 20090610
  Receipt Date: 20130111
  Transmission Date: 20140127
  Serious: Yes (Hospitalization, Disabling, Other)
  Sender: FDA-Public Use
  Company Number: US-ELI_LILLY_AND_COMPANY-US200905006069

PATIENT
  Age: 54 None
  Sex: Male
  Weight: 90.7 kg

DRUGS (18)
  1. BYETTA [Suspect]
     Indication: TYPE 2 DIABETES MELLITUS
     Dosage: 5 UG, EACH MORNING
     Route: 065
     Dates: start: 20061019, end: 20071104
  2. BYETTA [Suspect]
     Dosage: 5 UG, EACH EVENING
  3. LEVEMIR [Concomitant]
     Indication: DIABETES MELLITUS
     Dosage: 500 U, EACH MORNING
     Dates: start: 200709
  4. LEVEMIR [Concomitant]
     Dosage: 500 U, EACH EVENING
  5. NOVOLOG [Concomitant]
     Indication: TYPE 2 DIABETES MELLITUS
     Dosage: UNK
     Dates: start: 200610, end: 2008
  6. PRILOSEC [Concomitant]
     Dosage: 40 MG, EACH MORNING
  7. TRICOR [Concomitant]
     Dosage: 48 MG, QD
  8. ATENOLOL [Concomitant]
     Dosage: 25 MG, EACH MORNING
  9. HYDROCHLOROTHIAZIDE [Concomitant]
     Dosage: 25 MG, EACH MORNING
  10. QUINAPRIL [Concomitant]
     Dosage: 40 MG, BID
  11. ROZEREM [Concomitant]
     Dosage: 8 MG, EACH EVENING
  12. ASPIRIN [Concomitant]
     Dosage: 81 MG, EACH MORNING
  13. CENTRUM [Concomitant]
     Route: 048
  14. SEROQUEL [Concomitant]
     Dosage: 200 MG, EACH EVENING
  15. LEXAPRO [Concomitant]
     Dosage: 30 MG, EACH MORNING
  16. CYMBALTA [Concomitant]
     Dosage: 60 MG, EACH MORNING
  17. LAMICTAL [Concomitant]
     Dosage: 100 MG, EACH MORNING
  18. ABILIFY [Concomitant]
     Dosage: 30 MG, EACH EVENING

REACTIONS (8)
  - Pancreatitis necrotising [Recovered/Resolved]
  - Diabetic ketoacidosis [Unknown]
  - Loss of consciousness [Recovered/Resolved]
  - Coma [Recovered/Resolved]
  - Sepsis [Unknown]
  - Renal injury [Unknown]
  - Abdominal pain upper [Unknown]
  - Off label use [Recovered/Resolved]
